FAERS Safety Report 7161441-5 (Version None)
Quarter: 2010Q4

REPORT INFORMATION
  Report Type: 
  Country: None (occurrence: None)
  Receive Date: 20101215
  Receipt Date: 20101214
  Transmission Date: 20110411
  Serious: Yes (Death)
  Sender: FDA-Public Use
  Company Number: JP-TYCO HEALTHCARE/MALLINCKRODT-T201002297

PATIENT
  Age: 79 Year
  Sex: Male

DRUGS (1)
  1. OPTIRAY 350 [Suspect]
     Indication: ARTERIOGRAM CORONARY
     Dosage: 7 ML, SINGLE
     Route: 013
     Dates: start: 20101116, end: 20101116

REACTIONS (1)
  - SHOCK [None]
